FAERS Safety Report 9770424 (Version 3)
Quarter: 2014Q1

REPORT INFORMATION
  Report Type: Spontaneous
  Country: FR (occurrence: FR)
  Receive Date: 20131218
  Receipt Date: 20140211
  Transmission Date: 20141002
  Serious: Yes (Hospitalization)
  Sender: FDA-Public Use
  Company Number: PHHY2013FR123723

PATIENT
  Age: 82 Year
  Sex: Female

DRUGS (10)
  1. LUCENTIS [Suspect]
     Indication: AGE-RELATED MACULAR DEGENERATION
     Dosage: 0.5 MG, UNK
     Route: 031
     Dates: start: 20090706
  2. LUCENTIS [Suspect]
     Dosage: 0.5 MG, UNK
     Route: 031
     Dates: start: 20090807
  3. LUCENTIS [Suspect]
     Dosage: 0.5 MG, UNK
     Route: 031
     Dates: start: 20090908
  4. LUCENTIS [Suspect]
     Dosage: 0.5 MG, UNK
     Route: 031
     Dates: start: 20091214
  5. LUCENTIS [Suspect]
     Dosage: 0.5 MG, UNK
     Route: 031
     Dates: start: 20101206
  6. LUCENTIS [Suspect]
     Dosage: 0.5 MG, UNK
     Route: 031
     Dates: start: 20130909
  7. LOXEN [Suspect]
     Dosage: 20 MG, BID
     Route: 048
     Dates: end: 20130917
  8. INEXIUM//ESOMEPRAZOLE MAGNESIUM [Suspect]
     Dosage: 20 MG, QD
     Route: 048
     Dates: end: 20130917
  9. PREDNISOLONE [Suspect]
     Indication: TEMPORAL ARTERITIS
     Dosage: 35 MG, QD
     Route: 048
     Dates: start: 201306, end: 20130917
  10. FORLAX [Concomitant]
     Dosage: UNK UKN, BID

REACTIONS (6)
  - Thrombotic microangiopathy [Recovered/Resolved with Sequelae]
  - Renal failure acute [Unknown]
  - Platelet count decreased [Recovered/Resolved]
  - Anaemia [Unknown]
  - Fluid retention [Unknown]
  - Sodium retention [Unknown]
